FAERS Safety Report 16568942 (Version 1)
Quarter: 2019Q3

REPORT INFORMATION
  Report Type: Spontaneous
  Country: PT (occurrence: BR)
  Receive Date: 20190713
  Receipt Date: 20190713
  Transmission Date: 20191004
  Serious: Yes (Other)
  Sender: FDA-Public Use
  Company Number: PT-AMGEN-BRASP2019112037

PATIENT
  Age: 68 Year
  Sex: Female

DRUGS (2)
  1. ANASTROZOLE. [Concomitant]
     Active Substance: ANASTROZOLE
     Indication: BREAST CANCER METASTATIC
  2. XGEVA [Suspect]
     Active Substance: DENOSUMAB
     Indication: METASTASES TO BONE
     Dosage: UNK
     Route: 065

REACTIONS (7)
  - Renal failure [Unknown]
  - Metastases to liver [Unknown]
  - Breast cancer recurrent [Unknown]
  - Tumour marker increased [Unknown]
  - Urinary tract neoplasm [Unknown]
  - Hydronephrosis [Unknown]
  - Hypocalcaemia [Unknown]
